FAERS Safety Report 14512350 (Version 1)
Quarter: 2018Q1

REPORT INFORMATION
  Report Type: Spontaneous
  Country: US (occurrence: US)
  Receive Date: 20180209
  Receipt Date: 20180209
  Transmission Date: 20180509
  Serious: No
  Sender: FDA-Public Use
  Company Number: US-ALLERGAN-1720160US

PATIENT
  Sex: Female

DRUGS (4)
  1. LOTEMAX [Concomitant]
     Active Substance: LOTEPREDNOL ETABONATE
  2. FISH OIL [Concomitant]
     Active Substance: FISH OIL
  3. ERYTHROMYCIN BASE [Concomitant]
     Active Substance: ERYTHROMYCIN
  4. RESTASIS [Suspect]
     Active Substance: CYCLOSPORINE
     Indication: DRY EYE
     Dosage: 2 GTT, BID
     Route: 047
     Dates: start: 20170513, end: 20170515

REACTIONS (3)
  - Headache [Recovered/Resolved]
  - Hypersensitivity [Unknown]
  - Eye irritation [Recovered/Resolved]
